FAERS Safety Report 11005323 (Version 10)
Quarter: 2015Q2

REPORT INFORMATION
  Report Type: Report from Study
  Country: CA (occurrence: CA)
  Receive Date: 20150409
  Receipt Date: 20150603
  Transmission Date: 20150821
  Serious: Yes (Life-Threatening, Other)
  Sender: FDA-Public Use
  Company Number: PHHY2015CA038781

PATIENT
  Age: 58 Year
  Sex: Female

DRUGS (11)
  1. CICLOSPORIN [Suspect]
     Active Substance: CYCLOSPORINE
     Dosage: 300 MG, UNK
     Route: 058
     Dates: start: 20150325
  2. APO-HYDROXINE [Concomitant]
     Indication: PRODUCT USED FOR UNKNOWN INDICATION
     Dosage: 25 MG, QID AND TWICE AT NIGHT
     Route: 065
  3. EFFEXOR [Concomitant]
     Active Substance: VENLAFAXINE HYDROCHLORIDE
     Indication: PRODUCT USED FOR UNKNOWN INDICATION
     Dosage: 75 MG, QD
     Route: 065
  4. REACTINE                                /CAN/ [Concomitant]
     Indication: PRODUCT USED FOR UNKNOWN INDICATION
     Dosage: 6 DF, QD (20 MG)
     Route: 065
  5. CORTISONE [Concomitant]
     Active Substance: CORTISONE\HYDROCORTISONE
     Indication: PRODUCT USED FOR UNKNOWN INDICATION
     Route: 065
  6. LORAZEPAM. [Concomitant]
     Active Substance: LORAZEPAM
     Indication: PRODUCT USED FOR UNKNOWN INDICATION
     Dosage: 1 MG, BID
     Route: 065
  7. AMCINONIDE. [Concomitant]
     Active Substance: AMCINONIDE
     Indication: PRODUCT USED FOR UNKNOWN INDICATION
     Route: 065
  8. XOLAIR [Suspect]
     Active Substance: OMALIZUMAB
     Dosage: 300 MG, Q 4 WEEKS
     Route: 058
     Dates: start: 20150429, end: 20150429
  9. CICLOSPORIN [Suspect]
     Active Substance: CYCLOSPORINE
     Indication: CHRONIC SPONTANEOUS URTICARIA
     Dosage: UNK
     Route: 065
  10. XOLAIR [Suspect]
     Active Substance: OMALIZUMAB
     Indication: CHRONIC SPONTANEOUS URTICARIA
     Dosage: 300 MG, Q 4 WEEKS
     Route: 058
     Dates: start: 20150325
  11. PROTOPIC [Concomitant]
     Active Substance: TACROLIMUS
     Indication: PRODUCT USED FOR UNKNOWN INDICATION
     Route: 065

REACTIONS (26)
  - Urticaria [Recovering/Resolving]
  - Wheezing [Unknown]
  - Pain of skin [Unknown]
  - Insomnia [Unknown]
  - Respiratory rate increased [Unknown]
  - Poor quality sleep [Unknown]
  - Malaise [Unknown]
  - Rash [Unknown]
  - Drug ineffective [Unknown]
  - Respiratory arrest [Unknown]
  - Asthma [Unknown]
  - Somnolence [Unknown]
  - Eczema [Unknown]
  - Renal failure [Unknown]
  - Influenza [Unknown]
  - Pruritus [Unknown]
  - Disturbance in attention [Unknown]
  - Snoring [Unknown]
  - Nasopharyngitis [Unknown]
  - Suicidal ideation [Recovering/Resolving]
  - Bronchitis [Unknown]
  - Feeling abnormal [Recovering/Resolving]
  - Anxiety [Unknown]
  - Cough [Unknown]
  - Headache [Unknown]
  - Stress [Unknown]

NARRATIVE: CASE EVENT DATE: 201503
